FAERS Safety Report 6252331-0 (Version None)
Quarter: 2009Q2

REPORT INFORMATION
  Report Type: 
  Country: None (occurrence: None)
  Receive Date: 20090629
  Receipt Date: 20090629
  Transmission Date: 20091009
  Serious: Yes (Disabling)
  Sender: FDA-Public Use
  Company Number: None

PATIENT
  Age: 65 Year
  Sex: Female
  Weight: 64.8644 kg

DRUGS (1)
  1. METOCLOPRAMIDE [Suspect]
     Indication: IMPAIRED GASTRIC EMPTYING
     Dosage: 1 TABLET, DECREASING TO 1/4 TABLET 2 X DAILY ORALLY
     Route: 048
     Dates: start: 20070509, end: 20090524

REACTIONS (8)
  - ARTHROPATHY [None]
  - DYSKINESIA [None]
  - INSOMNIA [None]
  - LIMB DISCOMFORT [None]
  - MUSCLE SPASMS [None]
  - MUSCULOSKELETAL STIFFNESS [None]
  - MYALGIA [None]
  - SENSATION OF HEAVINESS [None]
